FAERS Safety Report 25024820 (Version 2)
Quarter: 2025Q1

REPORT INFORMATION
  Report Type: Report from Study
  Country: US (occurrence: US)
  Receive Date: 20250228
  Receipt Date: 20250313
  Transmission Date: 20250408
  Serious: Yes (Hospitalization)
  Sender: ABBVIE
  Company Number: US-ABBVIE-6146744

PATIENT
  Age: 55 Year
  Sex: Female
  Weight: 73.481 kg

DRUGS (1)
  1. SKYRIZI [Suspect]
     Active Substance: RISANKIZUMAB-RZAA
     Indication: Crohn^s disease
     Dosage: UNKNOWN
     Route: 058
     Dates: start: 20230110

REACTIONS (4)
  - Crohn^s disease [Recovering/Resolving]
  - Large intestinal stenosis [Recovering/Resolving]
  - Frequent bowel movements [Recovering/Resolving]
  - Gastrointestinal scarring [Recovering/Resolving]

NARRATIVE: CASE EVENT DATE: 20240101
